FAERS Safety Report 8441399 (Version 6)
Quarter: 2013Q1

REPORT INFORMATION
  Report Type: Spontaneous
  Country: US (occurrence: US)
  Receive Date: 20120305
  Receipt Date: 20130221
  Transmission Date: 20140127
  Serious: Yes (Hospitalization)
  Sender: FDA-Public Use
  Company Number: US-GLAXOSMITHKLINE-A0932365A

PATIENT
  Age: 66 Year
  Sex: Male

DRUGS (1)
  1. AVANDIA [Suspect]
     Indication: DIABETES MELLITUS
     Dosage: 4MG PER DAY
     Route: 048

REACTIONS (9)
  - Cerebrovascular accident [Not Recovered/Not Resolved]
  - Cardiac valve disease [Unknown]
  - Renal failure [Unknown]
  - Cardiac failure congestive [Unknown]
  - Cardiomyopathy [Unknown]
  - Transient ischaemic attack [Unknown]
  - Renal failure chronic [Unknown]
  - Coronary artery disease [Unknown]
  - Aortic stenosis [Unknown]
